FAERS Safety Report 14660340 (Version 1)
Quarter: 2018Q1

REPORT INFORMATION
  Report Type: Spontaneous
  Country: US (occurrence: US)
  Receive Date: 20180320
  Receipt Date: 20180320
  Transmission Date: 20180509
  Serious: Yes (Other)
  Sender: FDA-Public Use
  Company Number: US-JNJFOC-20180323302

PATIENT
  Age: 41 Year
  Sex: Male
  Weight: 107.05 kg

DRUGS (2)
  1. INVOKANA [Suspect]
     Active Substance: CANAGLIFLOZIN
     Indication: TYPE 2 DIABETES MELLITUS
     Route: 048
     Dates: start: 20141211
  2. INVOKANA [Suspect]
     Active Substance: CANAGLIFLOZIN
     Indication: TYPE 2 DIABETES MELLITUS
     Dosage: 300 MG HALF TABLET
     Route: 048
     Dates: start: 20151005

REACTIONS (6)
  - Toe amputation [Unknown]
  - Off label use [Unknown]
  - Osteomyelitis [Unknown]
  - Drug prescribing error [Unknown]
  - Cellulitis [Unknown]
  - Syncope [Unknown]

NARRATIVE: CASE EVENT DATE: 20151005
